FAERS Safety Report 8487539-7 (Version None)
Quarter: 2012Q3

REPORT INFORMATION
  Report Type: 
  Country: None (occurrence: None)
  Receive Date: 20120705
  Receipt Date: 20120620
  Transmission Date: 20120928
  Serious: No
  Sender: FDA-Public Use
  Company Number: US-JNJFOC-20120611103

PATIENT
  Sex: Female
  Weight: 100.7 kg

DRUGS (4)
  1. FENTANYL-100 [Suspect]
     Indication: BACK PAIN
     Route: 062
  2. FENTANYL-100 [Suspect]
     Route: 062
     Dates: start: 20120620
  3. FENTANYL-100 [Suspect]
     Route: 062
     Dates: end: 20120619
  4. FENTANYL-100 [Suspect]
     Indication: BACK PAIN
     Route: 062

REACTIONS (2)
  - WRONG TECHNIQUE IN DRUG USAGE PROCESS [None]
  - THERAPEUTIC RESPONSE DECREASED [None]
